FAERS Safety Report 4415921-3 (Version None)
Quarter: 2004Q3

REPORT INFORMATION
  Report Type: 
  Country: None (occurrence: None)
  Receive Date: 20040805
  Receipt Date: 20040610
  Transmission Date: 20050211
  Serious: No
  Sender: FDA-Public Use
  Company Number: US-GLAXOSMITHKLINE-A0514154A

PATIENT
  Sex: Male

DRUGS (2)
  1. AVANDAMET [Suspect]
     Route: 065
  2. AVANDIA [Suspect]
     Dosage: 4MG PER DAY
     Route: 048

REACTIONS (2)
  - GASTROINTESTINAL DISORDER [None]
  - WEIGHT INCREASED [None]
